FAERS Safety Report 4321122-X (Version None)
Quarter: 2004Q1

REPORT INFORMATION
  Report Type: 
  Country: None (occurrence: None)
  Receive Date: 20040322
  Receipt Date: 20040309
  Transmission Date: 20041129
  Serious: Yes (Hospitalization)
  Sender: FDA-Public Use
  Company Number: JP-GLAXOSMITHKLINE-B0326134A

PATIENT
  Age: 32 Year
  Sex: Female

DRUGS (7)
  1. SAWACILLIN [Suspect]
     Indication: GASTRIC ULCER HELICOBACTER
     Dosage: 1500MG PER DAY
     Route: 048
     Dates: start: 20040114, end: 20040121
  2. PARIET [Suspect]
     Indication: GASTRIC ULCER
     Route: 048
     Dates: start: 20040107, end: 20040113
  3. TAKEPRON [Suspect]
     Indication: GASTRIC ULCER HELICOBACTER
     Route: 048
     Dates: start: 20040114, end: 20040121
  4. CLARITH [Suspect]
     Indication: GASTRIC ULCER HELICOBACTER
     Route: 048
     Dates: start: 20040114, end: 20040121
  5. METHOTREXATE SODIUM [Concomitant]
     Dates: end: 20040209
  6. PREDNISOLONE [Concomitant]
     Dates: end: 20040209
  7. IMURAN [Concomitant]
     Dates: end: 20040209

REACTIONS (1)
  - PANCYTOPENIA [None]
